FAERS Safety Report 8616301-7 (Version None)
Quarter: 2012Q3

REPORT INFORMATION
  Report Type: 
  Country: None (occurrence: None)
  Receive Date: 20120823
  Receipt Date: 20120816
  Transmission Date: 20120928
  Serious: Yes (Hospitalization)
  Sender: FDA-Public Use
  Company Number: FR-009507513-1208FRA007332

PATIENT

DRUGS (2)
  1. ISENTRESS [Suspect]
     Indication: HIV INFECTION
     Dosage: 400 MG, BID
     Dates: start: 20120710
  2. MARAVIROC [Suspect]
     Dosage: 300 MG, BID
     Dates: start: 20120710

REACTIONS (3)
  - PYREXIA [None]
  - DIARRHOEA [None]
  - RASH [None]
